FAERS Safety Report 20980968 (Version 1)
Quarter: 2022Q2

REPORT INFORMATION
  Report Type: Spontaneous
  Country: US (occurrence: None)
  Receive Date: 20220620
  Receipt Date: 20220620
  Transmission Date: 20220720
  Serious: Yes (Hospitalization)
  Sender: FDA-Public Use
  Company Number: US-ROCHE-3116484

PATIENT
  Sex: Female
  Weight: 61.290 kg

DRUGS (5)
  1. ALECENSA [Suspect]
     Active Substance: ALECTINIB HYDROCHLORIDE
     Indication: Lung neoplasm malignant
     Dosage: TAKES 4 TABS TWICE A DAY ;ONGOING: YES
     Route: 048
     Dates: start: 2022
  2. COLACE [Concomitant]
     Active Substance: DOCUSATE SODIUM
     Dosage: TAKES UP TO 6 CAPSULES PER DAY AS NEEDED
     Route: 048
  3. LEVOTHYROXINE [Concomitant]
     Active Substance: LEVOTHYROXINE
     Indication: Hypothyroidism
     Route: 048
  4. VITAMIN D3 [Concomitant]
     Active Substance: CHOLECALCIFEROL
     Route: 048
  5. VITAMINS [Concomitant]
     Active Substance: VITAMINS
     Route: 048

REACTIONS (4)
  - Pneumothorax [Recovering/Resolving]
  - Dyspnoea [Not Recovered/Not Resolved]
  - Product dose omission issue [Recovered/Resolved]
  - Limb injury [Unknown]

NARRATIVE: CASE EVENT DATE: 20220101
